FAERS Safety Report 5160286-5 (Version None)
Quarter: 2006Q4

REPORT INFORMATION
  Report Type: 
  Country: None (occurrence: None)
  Receive Date: 20061120
  Receipt Date: 20061108
  Transmission Date: 20070319
  Serious: Yes (Hospitalization)
  Sender: FDA-Public Use
  Company Number: GXKR2006US07180

PATIENT
  Age: 33 Year
  Sex: Female

DRUGS (3)
  1. PREDNISOLONE TAB [Suspect]
     Indication: POLYMORPHIC ERUPTION OF PREGNANCY
     Dosage: 60 MG , QD
  2. BUPIVACAINE [Concomitant]
  3. FENTANYL [Concomitant]

REACTIONS (10)
  - DRUG EXPOSURE DURING PREGNANCY [None]
  - EXTRADURAL ABSCESS [None]
  - IMMUNOSUPPRESSION [None]
  - INDUCED LABOUR [None]
  - NORMAL NEWBORN [None]
  - POST PROCEDURAL COMPLICATION [None]
  - PRE-ECLAMPSIA [None]
  - PREMATURE LABOUR [None]
  - STAPHYLOCOCCAL INFECTION [None]
  - UTERINE HYPERTONUS [None]
